FAERS Safety Report 8511072-7 (Version None)
Quarter: 2012Q3

REPORT INFORMATION
  Report Type: 
  Country: None (occurrence: None)
  Receive Date: 20120702
  Receipt Date: 20120620
  Transmission Date: 20120928
  Serious: Yes (Other)
  Sender: FDA-Public Use
  Company Number: 2012SP034936

PATIENT
  Age: 91 Year
  Sex: Female
  Weight: 50 kg

DRUGS (8)
  1. COVERAM (ACE INHIBITOR NOS) [Suspect]
     Indication: PRODUCT USED FOR UNKNOWN INDICATION
     Dosage: 10 MG;ONCE;PO
     Route: 048
     Dates: start: 20120605, end: 20120605
  2. PROCORALAN [Concomitant]
  3. CITALOPRAM HYDROBROMIDE [Concomitant]
  4. NEXIUM [Concomitant]
  5. OROPERIDYS [Concomitant]
  6. ATORVASTATIN [Concomitant]
  7. MIRTAZAPINE [Suspect]
     Indication: PRODUCT USED FOR UNKNOWN INDICATION
     Dosage: 30 MG;ONCE;PO
     Route: 048
     Dates: start: 20120605, end: 20120605
  8. RABEPRAZOLE SODIUM [Concomitant]

REACTIONS (4)
  - WRONG DRUG ADMINISTERED [None]
  - FLUSHING [None]
  - ACCIDENTAL EXPOSURE [None]
  - SPEECH DISORDER [None]
